FAERS Safety Report 4688368-2 (Version None)
Quarter: 2005Q2

REPORT INFORMATION
  Report Type: 
  Country: None (occurrence: None)
  Receive Date: 20050609
  Receipt Date: 20050607
  Transmission Date: 20051028
  Serious: Yes (Hospitalization)
  Sender: FDA-Public Use
  Company Number: FRWYE669017MAY05

PATIENT
  Age: 33 Year
  Sex: Male

DRUGS (5)
  1. EFFEXOR XR [Suspect]
     Indication: DEPRESSION
     Dosage: 37.5 MG 1X PER 1 DAY ORAL
     Route: 048
     Dates: start: 20030701
  2. PROPRANOLOL HYDROCHLORIDE [Suspect]
     Indication: COMPLICATED MIGRAINE
     Dosage: 160 MG 1X PER 1 DAY ORAL
     Route: 048
     Dates: start: 20030701
  3. LEXOMIL (BROMAZEPAM, , 0) [Suspect]
     Dosage: 0.25 TABLET 1X PER 1 DAY ORAL
     Route: 048
     Dates: start: 20030701
  4. SOLIAN (AMISULPRIDE, , 0) [Suspect]
     Dosage: 100 MG 1X PER 1 DAY ORAL
     Route: 048
     Dates: start: 20030701
  5. PANTOPRAZOLE SODIUM [Concomitant]

REACTIONS (8)
  - C-REACTIVE PROTEIN INCREASED [None]
  - CATHETER RELATED COMPLICATION [None]
  - MYOPERICARDITIS [None]
  - PLEURAL EFFUSION [None]
  - PLEURISY [None]
  - PULMONARY EMBOLISM [None]
  - THROMBOPHLEBITIS SUPERFICIAL [None]
  - WHITE BLOOD CELL COUNT INCREASED [None]
